FAERS Safety Report 6483793-1 (Version None)
Quarter: 2009Q4

REPORT INFORMATION
  Report Type: 
  Country: None (occurrence: None)
  Receive Date: 20091208
  Receipt Date: 20091208
  Transmission Date: 20100525
  Serious: No
  Sender: FDA-Public Use
  Company Number: None

PATIENT
  Age: 50 Year
  Sex: Female
  Weight: 72.5755 kg

DRUGS (1)
  1. ADULT NASAL GEL SWAB [Suspect]
     Dates: start: 20020101

REACTIONS (2)
  - AGEUSIA [None]
  - ANOSMIA [None]
